FAERS Safety Report 6209606-0 (Version None)
Quarter: 2009Q2

REPORT INFORMATION
  Report Type: 
  Country: None (occurrence: None)
  Receive Date: 20090529
  Receipt Date: 20090529
  Transmission Date: 20091009
  Serious: Yes (Hospitalization)
  Sender: FDA-Public Use
  Company Number: None

PATIENT
  Age: 59 Year
  Sex: Male
  Weight: 66 kg

DRUGS (2)
  1. CETUXIMAB [Suspect]
     Dosage: 250 MG/M2
     Dates: start: 20090413, end: 20090508
  2. CISPLATIN [Suspect]
     Dosage: 100 MG/M2
     Dates: start: 20090413, end: 20090508

REACTIONS (9)
  - BLOOD CULTURE POSITIVE [None]
  - BLOOD PRESSURE DECREASED [None]
  - BODY TEMPERATURE INCREASED [None]
  - CHILLS [None]
  - DEHYDRATION [None]
  - HEART RATE INCREASED [None]
  - INFECTION [None]
  - MALNUTRITION [None]
  - TACHYCARDIA [None]
